FAERS Safety Report 4339519-0 (Version None)
Quarter: 2004Q2

REPORT INFORMATION
  Report Type: 
  Country: None (occurrence: None)
  Receive Date: 20040412
  Receipt Date: 20040401
  Transmission Date: 20050107
  Serious: Yes (Hospitalization, Disabling)
  Sender: FDA-Public Use
  Company Number: GB-JNJFOC-20040400304

PATIENT
  Age: 60 Year
  Sex: Female

DRUGS (10)
  1. REMICADE [Suspect]
     Indication: RHEUMATOID ARTHRITIS
     Dosage: SEE IMAGE, INTRAVENOUS
     Route: 042
     Dates: start: 20021022, end: 20031001
  2. METHOTREXATE [Concomitant]
  3. SALIVIX (SALIVIX) [Concomitant]
  4. PREDNISOLONE [Concomitant]
  5. RISEDRONATE (RISEDRONATE SODIUM) [Concomitant]
  6. CODEINE PHOSPHATE (CODEINE PHOSPHATE) [Concomitant]
  7. ACETAMINOPHEN [Concomitant]
  8. FOLIC ACID [Concomitant]
  9. VISCOTEARS (CARBOMER) [Concomitant]
  10. GTN SPRAY (GLYCERYL TRINITRATE) [Concomitant]

REACTIONS (2)
  - LOSS OF CONSCIOUSNESS [None]
  - PARAESTHESIA [None]
